FAERS Safety Report 4959617-8 (Version None)
Quarter: 2006Q1

REPORT INFORMATION
  Report Type: 
  Country: None (occurrence: None)
  Receive Date: 20060331
  Receipt Date: 20060317
  Transmission Date: 20060701
  Serious: Yes (Death)
  Sender: FDA-Public Use
  Company Number: JP-ROCHE-440839

PATIENT
  Age: 79 Year
  Sex: Female

DRUGS (7)
  1. PANALDINE [Suspect]
     Indication: CEREBRAL INFARCTION
     Route: 048
     Dates: start: 20060201, end: 20060209
  2. RADICUT [Concomitant]
     Indication: DRUG USE FOR UNKNOWN INDICATION
     Route: 041
     Dates: start: 20060201, end: 20060207
  3. ASPIRIN [Concomitant]
     Indication: CEREBRAL INFARCTION
     Route: 048
     Dates: start: 20060201, end: 20060209
  4. SLONNON [Concomitant]
     Dosage: DOSE OF SIX UNITS WAS GIVEN FOR TWO DAYS, 1ST TO 2ND FEBRUARY, AND A DOSE OF ONE UNIT WAS GIVEN FOR+
     Route: 041
     Dates: start: 20060201, end: 20060207
  5. NICHOLIN [Concomitant]
     Dosage: DRUG REPORTED AS ^NICHOLIN-H^
     Route: 041
     Dates: start: 20060201, end: 20060210
  6. LOW MOLECULAR DEXTRAN [Concomitant]
     Route: 041
     Dates: start: 20060201, end: 20060207
  7. HEPARIN [Concomitant]
     Dosage: 10000 PER 21 HOURS
     Route: 041
     Dates: start: 20060203, end: 20060207

REACTIONS (3)
  - CEREBRAL HAEMORRHAGE [None]
  - DISSEMINATED INTRAVASCULAR COAGULATION [None]
  - HEPATIC FAILURE [None]
